FAERS Safety Report 25783881 (Version 1)
Quarter: 2025Q3

REPORT INFORMATION
  Report Type: Spontaneous
  Country: US (occurrence: US)
  Receive Date: 20250910
  Receipt Date: 20250910
  Transmission Date: 20251020
  Serious: No
  Sender: TEVA
  Company Number: US-TEVA-VS-3368947

PATIENT
  Age: 84 Year
  Sex: Female

DRUGS (1)
  1. CROMOLYN SODIUM [Suspect]
     Active Substance: CROMOLYN SODIUM
     Indication: Product used for unknown indication
     Route: 065

REACTIONS (6)
  - Headache [Unknown]
  - Drug hypersensitivity [Unknown]
  - Feeling abnormal [Unknown]
  - Eye pain [Unknown]
  - Illness [Unknown]
  - Dizziness [Unknown]
